FAERS Safety Report 17499012 (Version 1)
Quarter: 2020Q1

REPORT INFORMATION
  Report Type: Report from Study
  Country: None (occurrence: US)
  Receive Date: 20200305
  Receipt Date: 20200305
  Transmission Date: 20200409
  Serious: No
  Sender: FDA-Public Use
  Company Number: US-US WORLDMEDS, LLC-USW201912-002335

PATIENT
  Age: 69 Year
  Sex: Male

DRUGS (1)
  1. LUCEMYRA [Suspect]
     Active Substance: LOFEXIDINE
     Indication: PRODUCT USED FOR UNKNOWN INDICATION
     Dates: start: 20191210

REACTIONS (3)
  - Fatigue [Unknown]
  - Hypoaesthesia [Unknown]
  - Anxiety [Unknown]

NARRATIVE: CASE EVENT DATE: 20191210
